FAERS Safety Report 16458981 (Version 1)
Quarter: 2019Q2

REPORT INFORMATION
  Report Type: Spontaneous
  Country: US (occurrence: US)
  Receive Date: 20190620
  Receipt Date: 20190620
  Transmission Date: 20190711
  Serious: No
  Sender: FDA-Public Use
  Company Number: US-THERAPEUTICSMD-2019TMD01102

PATIENT
  Sex: Female
  Weight: 65.76 kg

DRUGS (2)
  1. IMVEXXY [Suspect]
     Active Substance: ESTRADIOL
     Indication: VULVOVAGINAL DISCOMFORT
  2. IMVEXXY [Suspect]
     Active Substance: ESTRADIOL
     Indication: VULVOVAGINAL DRYNESS
     Dosage: 10 ?G, 2X/WEEK ON MONDAY AND FRIDAY BEFORE BED
     Route: 067
     Dates: end: 20190517

REACTIONS (3)
  - Urticaria [Not Recovered/Not Resolved]
  - Off label use [Recovered/Resolved]
  - Vulvovaginal pain [Not Recovered/Not Resolved]
